FAERS Safety Report 5703758-4 (Version None)
Quarter: 2008Q2

REPORT INFORMATION
  Report Type: 
  Country: None (occurrence: None)
  Receive Date: 20080413
  Receipt Date: 20080403
  Transmission Date: 20081010
  Serious: Yes (Other)
  Sender: FDA-Public Use
  Company Number: PHHY2008AR04656

PATIENT
  Age: 67 Year
  Sex: Female

DRUGS (1)
  1. DIOVAN [Suspect]
     Indication: HYPERTENSION
     Dosage: HALF TABLET PER DAY
     Route: 048
     Dates: start: 20070101, end: 20080101

REACTIONS (3)
  - ANGIOPLASTY [None]
  - BLOOD PRESSURE INCREASED [None]
  - HYPERGLYCAEMIA [None]
